FAERS Safety Report 5963750-1 (Version None)
Quarter: 2008Q4

REPORT INFORMATION
  Report Type: 
  Country: None (occurrence: None)
  Receive Date: 20081120
  Receipt Date: 20081105
  Transmission Date: 20090506
  Serious: Yes (Death, Hospitalization)
  Sender: FDA-Public Use
  Company Number: 2008S1019965

PATIENT
  Age: 70 Year
  Sex: Female

DRUGS (4)
  1. FENTANYL TRANSDERMAL SYSTEM [Suspect]
     Indication: CANCER PAIN
     Dosage: 12 UG; EVERY HOUR, TRANSDERMAL; TRANSDERMAL
     Route: 062
     Dates: start: 20081003, end: 20081003
  2. FENTANYL TRANSDERMAL SYSTEM [Suspect]
     Indication: CANCER PAIN
     Dosage: 12 UG; EVERY HOUR, TRANSDERMAL; TRANSDERMAL
     Route: 062
     Dates: start: 20081026, end: 20081026
  3. CHEMOTHERAPEUTICS NOS [Concomitant]
  4. ANALGESICS [Concomitant]

REACTIONS (1)
  - CEREBROVASCULAR ACCIDENT [None]
